FAERS Safety Report 8420869-3 (Version None)
Quarter: 2012Q2

REPORT INFORMATION
  Report Type: 
  Country: None (occurrence: None)
  Receive Date: 20120531
  Receipt Date: 20120516
  Transmission Date: 20120825
  Serious: Yes (Life-Threatening, Hospitalization, Disabling, Other)
  Sender: FDA-Public Use
  Company Number: B0788026A

PATIENT
  Age: 71 Year
  Sex: Female

DRUGS (15)
  1. ALFACALCIDIL [Concomitant]
  2. LEVOTHYROXINE SODIUM [Concomitant]
  3. CEFTAZIDIME [Suspect]
     Indication: PNEUMONIA
     Dosage: IV
     Route: 042
     Dates: start: 20120302, end: 20120307
  4. LANSOPRAZOLE [Concomitant]
  5. SODIUM BICARBONATE [Concomitant]
  6. DARBEPOETIN ALFA [Concomitant]
  7. BISOPROLOL FUMARATE [Concomitant]
  8. SIMVASTATIN [Concomitant]
  9. CALOGEN (SALCATONIN) [Concomitant]
  10. ISOSORBIDE MONONITRATE [Concomitant]
  11. CALCIUM CARBONATE [Concomitant]
  12. BUPRENORPHINE [Concomitant]
  13. ACETAMINOPHEN [Concomitant]
  14. GLICLAZIDE [Concomitant]
  15. ASPIRIN [Concomitant]

REACTIONS (4)
  - CONVULSION [None]
  - COMA [None]
  - NERVOUS SYSTEM DISORDER [None]
  - ELECTROENCEPHALOGRAM ABNORMAL [None]
